FAERS Safety Report 21400879 (Version 2)
Quarter: 2022Q4

REPORT INFORMATION
  Report Type: Report from Study
  Country: US (occurrence: US)
  Receive Date: 20221003
  Receipt Date: 20221017
  Transmission Date: 20230112
  Serious: No
  Sender: FDA-Public Use
  Company Number: US-ABBVIE-22K-163-4530620-00

PATIENT
  Age: 74 Year
  Sex: Female

DRUGS (4)
  1. VENCLEXTA [Suspect]
     Active Substance: VENETOCLAX
     Indication: Plasma cell myeloma
     Dosage: WEEK 1, STRENGTH 100 MG
     Route: 048
     Dates: start: 20220822, end: 20220829
  2. VENCLEXTA [Suspect]
     Active Substance: VENETOCLAX
     Indication: Plasma cell myeloma
     Dosage: WEEK 2 STRENGTH 100 MG
     Route: 048
     Dates: start: 20220830, end: 20220906
  3. VENCLEXTA [Suspect]
     Active Substance: VENETOCLAX
     Indication: Plasma cell myeloma
     Dosage: WEEK 3,  FORM STRENGTH: 100 MILLIGRAM
     Route: 048
     Dates: start: 20220907, end: 20220914
  4. VENCLEXTA [Suspect]
     Active Substance: VENETOCLAX
     Indication: Plasma cell myeloma
     Dosage: WEEK 4 WITH FOOD AND WATER STRENGTH 100 MG
     Route: 048
     Dates: start: 20220915, end: 20220921

REACTIONS (7)
  - Paraesthesia oral [Not Recovered/Not Resolved]
  - Nausea [Recovering/Resolving]
  - Fatigue [Recovering/Resolving]
  - Vision blurred [Recovering/Resolving]
  - Hypoaesthesia [Not Recovered/Not Resolved]
  - Hypoaesthesia [Recovered/Resolved]
  - Neuropathy peripheral [Recovering/Resolving]

NARRATIVE: CASE EVENT DATE: 20220901
